FAERS Safety Report 17842394 (Version 2)
Quarter: 2020Q2

REPORT INFORMATION
  Report Type: Spontaneous
  Country: RO (occurrence: RO)
  Receive Date: 20200529
  Receipt Date: 20200602
  Transmission Date: 20200714
  Serious: Yes (Death, Hospitalization, Other)
  Sender: FDA-Public Use
  Company Number: RO-ASTRAZENECA-2020SE69272

PATIENT
  Age: 70 Year
  Sex: Male

DRUGS (9)
  1. BRILIQUE [Suspect]
     Active Substance: TICAGRELOR
     Indication: ACUTE MYOCARDIAL INFARCTION
     Route: 048
     Dates: start: 201907
  2. BRILIQUE [Suspect]
     Active Substance: TICAGRELOR
     Indication: STENT PLACEMENT
     Route: 048
     Dates: start: 201907
  3. ASA [Concomitant]
     Active Substance: ASPIRIN
     Indication: ACUTE MYOCARDIAL INFARCTION
     Dates: start: 201907
  4. TRITACE [Concomitant]
     Active Substance: RAMIPRIL
     Route: 065
  5. OMNIC [Concomitant]
     Active Substance: TAMSULOSIN HYDROCHLORIDE
     Route: 065
  6. ASA [Concomitant]
     Active Substance: ASPIRIN
     Indication: STENT PLACEMENT
     Dates: start: 201907
  7. BETALOC ZOK [Concomitant]
     Active Substance: METOPROLOL SUCCINATE
     Route: 065
  8. SORTIS [Concomitant]
     Active Substance: ATORVASTATIN
     Route: 065
  9. SPIRONOLACTONE. [Concomitant]
     Active Substance: SPIRONOLACTONE
     Route: 065

REACTIONS (2)
  - Cardio-respiratory arrest [Fatal]
  - COVID-19 [Unknown]
